FAERS Safety Report 19722049 (Version 1)
Quarter: 2021Q3

REPORT INFORMATION
  Report Type: Report from Study
  Country: GT (occurrence: GT)
  Receive Date: 20210819
  Receipt Date: 20210819
  Transmission Date: 20211014
  Serious: Yes (Other)
  Sender: FDA-Public Use
  Company Number: NVSC2021GT186503

PATIENT
  Age: 76 Year
  Sex: Female

DRUGS (1)
  1. VYMADA [Suspect]
     Active Substance: SACUBITRIL\VALSARTAN
     Indication: PRODUCT USED FOR UNKNOWN INDICATION
     Dosage: 50 MG, QD (IN THE NIGHT)
     Route: 048
     Dates: start: 201908

REACTIONS (4)
  - Cardiac failure [Unknown]
  - Inappropriate schedule of product administration [Unknown]
  - Renal failure [Unknown]
  - Respiratory failure [Unknown]
